FAERS Safety Report 14320442 (Version 1)
Quarter: 2017Q4

REPORT INFORMATION
  Report Type: Spontaneous
  Country: US (occurrence: US)
  Receive Date: 20171222
  Receipt Date: 20171222
  Transmission Date: 20180321
  Serious: Yes (Hospitalization)
  Sender: FDA-Public Use
  Company Number: US-BIOMARINAP-US-2017-116504

PATIENT
  Sex: Male

DRUGS (2)
  1. KUVAN [Suspect]
     Active Substance: SAPROPTERIN DIHYDROCHLORIDE
     Indication: DEPRESSION
     Dosage: 1800 MG, QD
     Route: 065
  2. KUVAN [Suspect]
     Active Substance: SAPROPTERIN DIHYDROCHLORIDE
     Indication: TETRAHYDROBIOPTERIN DEFICIENCY

REACTIONS (8)
  - Abdominal pain upper [Unknown]
  - Off label use [Unknown]
  - Abnormal behaviour [Unknown]
  - Homicidal ideation [Unknown]
  - Oedema peripheral [Unknown]
  - Foaming at mouth [Unknown]
  - Agitation [Unknown]
  - Hypoaesthesia [Unknown]
